FAERS Safety Report 5375923-X (Version None)
Quarter: 2007Q2

REPORT INFORMATION
  Report Type: 
  Country: None (occurrence: None)
  Receive Date: 20070627
  Receipt Date: 20070627
  Transmission Date: 20071010
  Serious: Yes (Disabling)
  Sender: FDA-Public Use
  Company Number: None

PATIENT
  Age: 34 Year
  Sex: Female
  Weight: 66.2252 kg

DRUGS (1)
  1. MULTIHANCE [Suspect]
     Indication: DIAGNOSTIC PROCEDURE
     Dosage: INTRA-ARTIC
     Route: 014
     Dates: start: 20070309, end: 20070309

REACTIONS (7)
  - DRUG INTERACTION [None]
  - FIBROSIS [None]
  - NAUSEA [None]
  - NEPHROGENIC FIBROSING DERMOPATHY [None]
  - PIGMENTATION DISORDER [None]
  - PRURITUS [None]
  - URTICARIA [None]
